FAERS Safety Report 22077125 (Version 1)
Quarter: 2023Q1

REPORT INFORMATION
  Report Type: Spontaneous
  Country: EG (occurrence: EG)
  Receive Date: 20230309
  Receipt Date: 20230309
  Transmission Date: 20230417
  Serious: Yes (Death, Life-Threatening, Hospitalization)
  Sender: FDA-Public Use
  Company Number: EG-002147023-NVSC2023EG053674

PATIENT
  Age: 13 Year
  Sex: Female
  Weight: 40 kg

DRUGS (3)
  1. METHOTREXATE [Suspect]
     Active Substance: METHOTREXATE
     Indication: Acute lymphocytic leukaemia
     Dosage: 650 MG (INFUSION, OVER 2 HOURS)
     Route: 042
     Dates: start: 20220717
  2. VFEND [Suspect]
     Active Substance: VORICONAZOLE
     Indication: Antifungal treatment
     Dosage: 200 MG, BID
     Route: 048
     Dates: start: 2022
  3. LEVOFLOXACIN [Suspect]
     Active Substance: LEVOFLOXACIN
     Indication: Product used for unknown indication
     Dosage: 375 MG, QD
     Route: 048
     Dates: start: 20220719, end: 20220720

REACTIONS (9)
  - Toxicity to various agents [Fatal]
  - Stomatitis [Fatal]
  - Oropharyngeal pain [Fatal]
  - Discoloured vomit [Fatal]
  - Acute lymphocytic leukaemia [Fatal]
  - Abdominal pain [Fatal]
  - Vomiting [Fatal]
  - Diarrhoea [Fatal]
  - Rash [Fatal]

NARRATIVE: CASE EVENT DATE: 20220719
